FAERS Safety Report 6149683-9 (Version None)
Quarter: 2009Q2

REPORT INFORMATION
  Report Type: 
  Country: None (occurrence: None)
  Receive Date: 20090409
  Receipt Date: 20090331
  Transmission Date: 20091009
  Serious: Yes (Hospitalization)
  Sender: FDA-Public Use
  Company Number: FR-B.I. PHARMACEUTICALS,INC./RIDGEFIELD-2009-DE-02945GL

PATIENT
  Sex: Female

DRUGS (9)
  1. PRITOR [Suspect]
     Indication: HYPERTENSION
     Dosage: 80MG
     Route: 048
     Dates: start: 19930101
  2. PAROXETINE HYDROCHLORIDE [Suspect]
     Indication: DEPRESSION
     Dosage: 1ANZ
     Route: 048
     Dates: start: 19920101
  3. DOMPERIDONE [Suspect]
     Indication: NAUSEA
     Dosage: 40MG
     Route: 048
     Dates: start: 20090125, end: 20090203
  4. SPIRAMYCIN [Suspect]
     Indication: EAR INFECTION
     Dosage: 2ANZ
     Route: 048
     Dates: start: 20080101, end: 20090103
  5. SPIRAMYCIN [Suspect]
     Indication: RHINITIS
  6. SPIRAMYCIN [Suspect]
     Indication: PHARYNGITIS
  7. NIMESULIDE [Suspect]
     Indication: PAIN
     Dates: end: 20090203
  8. ALPRAZOLAM [Suspect]
     Indication: ANXIETY
     Dosage: .5MG
     Route: 048
     Dates: start: 19920101
  9. URAPIDIL [Suspect]
     Indication: HYPERTENSION
     Dosage: 60MG
     Route: 048
     Dates: start: 19930101

REACTIONS (3)
  - PYELONEPHRITIS ACUTE [None]
  - PYREXIA [None]
  - URINARY RETENTION [None]
